FAERS Safety Report 6917450-1 (Version None)
Quarter: 2010Q3

REPORT INFORMATION
  Report Type: 
  Country: None (occurrence: None)
  Receive Date: 20100810
  Receipt Date: 20100802
  Transmission Date: 20110219
  Serious: Yes (Other)
  Sender: FDA-Public Use
  Company Number: PHHY2010JP46748

PATIENT
  Age: 55 Year
  Sex: Female

DRUGS (3)
  1. SANDIMMUNE [Suspect]
     Indication: COLITIS ULCERATIVE
     Dosage: 2 MG/KG (24-HOUR INFUSION)
     Route: 041
  2. SANDIMMUNE [Suspect]
     Dosage: 1 MG/KG
  3. IMURAN [Concomitant]
     Indication: COLITIS ULCERATIVE
     Dosage: 50 MG, UNK
     Route: 048

REACTIONS (5)
  - BLOOD PRESSURE INCREASED [None]
  - COLITIS ULCERATIVE [None]
  - IMMUNOSUPPRESSANT DRUG LEVEL INCREASED [None]
  - PULMONARY VENOUS THROMBOSIS [None]
  - VENOUS THROMBOSIS LIMB [None]
